FAERS Safety Report 5027273-9 (Version None)
Quarter: 2006Q2

REPORT INFORMATION
  Report Type: 
  Country: None (occurrence: None)
  Receive Date: 20060608
  Receipt Date: 20060530
  Transmission Date: 20061013
  Serious: Yes (Hospitalization)
  Sender: FDA-Public Use
  Company Number: 2006070653

PATIENT
  Age: 57 Year
  Sex: Female

DRUGS (2)
  1. PREDNISOLONE [Suspect]
     Indication: ARTHRITIS
     Dosage: 40 MG (40 MG, 1 IN 1 D), ORAL
     Route: 048
  2. MESALAMINE [Concomitant]

REACTIONS (1)
  - PUSTULAR PSORIASIS [None]
